FAERS Safety Report 4505813-3 (Version None)
Quarter: 2004Q4

REPORT INFORMATION
  Report Type: 
  Country: None (occurrence: None)
  Receive Date: 20041119
  Receipt Date: 20041108
  Transmission Date: 20050328
  Serious: Yes (Hospitalization)
  Sender: FDA-Public Use
  Company Number: JP-JNJFOC-20041100348

PATIENT
  Age: 50 Year
  Sex: Male

DRUGS (1)
  1. ITRIZOLE [Suspect]
     Indication: ONYCHOMYCOSIS
     Route: 049

REACTIONS (3)
  - HYPOTENSION [None]
  - NASOPHARYNGITIS [None]
  - OCULOMUCOCUTANEOUS SYNDROME [None]
